FAERS Safety Report 20968105 (Version 2)
Quarter: 2022Q2

REPORT INFORMATION
  Report Type: Report from Study
  Country: CA (occurrence: CA)
  Receive Date: 20220616
  Receipt Date: 20220623
  Transmission Date: 20220721
  Serious: Yes (Life-Threatening, Other)
  Sender: FDA-Public Use
  Company Number: CA-BoehringerIngelheim-2021-BI-143125

PATIENT
  Age: 68 Year
  Sex: Male

DRUGS (3)
  1. OFEV [Suspect]
     Active Substance: NINTEDANIB
     Indication: Idiopathic pulmonary fibrosis
     Route: 048
     Dates: start: 20211206, end: 20211226
  2. OFEV [Suspect]
     Active Substance: NINTEDANIB
     Route: 048
     Dates: end: 20220611
  3. OFEV [Suspect]
     Active Substance: NINTEDANIB
     Route: 048
     Dates: start: 20220328, end: 20220606

REACTIONS (26)
  - Product use complaint [Recovering/Resolving]
  - COVID-19 [Recovered/Resolved]
  - Diarrhoea [Recovered/Resolved]
  - Chromaturia [Recovering/Resolving]
  - Haematochezia [Recovered/Resolved]
  - Arthralgia [Recovering/Resolving]
  - Dyspnoea [Recovered/Resolved]
  - Pain [Recovered/Resolved]
  - Arthralgia [Recovering/Resolving]
  - Haematochezia [Not Recovered/Not Resolved]
  - Haematuria [Not Recovered/Not Resolved]
  - Gait disturbance [Recovering/Resolving]
  - Cough [Not Recovered/Not Resolved]
  - Haematochezia [Not Recovered/Not Resolved]
  - Diarrhoea [Not Recovered/Not Resolved]
  - Decreased appetite [Not Recovered/Not Resolved]
  - Weight decreased [Not Recovered/Not Resolved]
  - Feeling abnormal [Recovered/Resolved]
  - Productive cough [Not Recovered/Not Resolved]
  - Epistaxis [Recovering/Resolving]
  - Abdominal discomfort [Not Recovered/Not Resolved]
  - Joint stiffness [Recovering/Resolving]
  - Joint swelling [Unknown]
  - Loss of personal independence in daily activities [Unknown]
  - Foreign body in throat [Unknown]
  - Peripheral swelling [Unknown]

NARRATIVE: CASE EVENT DATE: 20211201
